FAERS Safety Report 8013621-4 (Version None)
Quarter: 2011Q4

REPORT INFORMATION
  Report Type: 
  Country: None (occurrence: None)
  Receive Date: 20111229
  Receipt Date: 20111227
  Transmission Date: 20120403
  Serious: Yes (Hospitalization, Other)
  Sender: FDA-Public Use
  Company Number: US-PFIZER INC-2011303361

PATIENT
  Sex: Female
  Weight: 68 kg

DRUGS (6)
  1. LYRICA [Suspect]
     Indication: PAIN IN EXTREMITY
  2. LYRICA [Suspect]
     Indication: ARTHRALGIA
  3. LYRICA [Suspect]
     Indication: PAIN
     Dosage: UNK
  4. GOLIMUMAB [Suspect]
     Indication: RHEUMATOID ARTHRITIS
     Dosage: 50 MG
     Route: 058
     Dates: start: 20090101
  5. ZOLEDRONIC ACID [Concomitant]
     Indication: SPINAL DISORDER
     Dosage: UNK
     Route: 042
  6. METHOTREXATE [Concomitant]
     Indication: RHEUMATOID ARTHRITIS
     Dosage: UNK

REACTIONS (7)
  - FALL [None]
  - INTERVERTEBRAL DISC PROTRUSION [None]
  - PAIN [None]
  - BALANCE DISORDER [None]
  - PAIN IN EXTREMITY [None]
  - SPINAL FRACTURE [None]
  - BODY HEIGHT DECREASED [None]
